FAERS Safety Report 7116776-9 (Version None)
Quarter: 2010Q4

REPORT INFORMATION
  Report Type: 
  Country: None (occurrence: None)
  Receive Date: 20101122
  Receipt Date: 20101103
  Transmission Date: 20110411
  Serious: Yes (Other)
  Sender: FDA-Public Use
  Company Number: FR-AMGEN-KDL435245

PATIENT

DRUGS (4)
  1. NEULASTA [Suspect]
     Indication: CHEMOTHERAPY
     Dosage: 6 MG, QD
     Route: 058
     Dates: start: 20100824, end: 20100827
  2. NEULASTA [Suspect]
     Dosage: UNK UNK, QID
  3. GRANOCYTE [Concomitant]
  4. EPOGEN [Concomitant]

REACTIONS (3)
  - MEDICATION ERROR [None]
  - WHITE BLOOD CELL COUNT ABNORMAL [None]
  - WRONG DRUG ADMINISTERED [None]
